FAERS Safety Report 18436805 (Version 1)
Quarter: 2020Q4

REPORT INFORMATION
  Report Type: Spontaneous
  Country: NL (occurrence: FR)
  Receive Date: 20201028
  Receipt Date: 20201028
  Transmission Date: 20210114
  Serious: Yes (Hospitalization)
  Sender: FDA-Public Use
  Company Number: FR-FRESENIUS KABI-FK202010966

PATIENT
  Age: 65 Year
  Sex: Female
  Weight: 49 kg

DRUGS (4)
  1. CEFAZOLIN SODIUM. [Suspect]
     Active Substance: CEFAZOLIN SODIUM
     Indication: ANTIBIOTIC PROPHYLAXIS
     Dosage: 2 G IN TOTAL
     Route: 041
     Dates: start: 20200930, end: 20200930
  2. PROPOFOL (MANUFACTURER UNKNOWN) [Suspect]
     Active Substance: PROPOFOL
     Indication: SEDATION
     Dosage: 100 MG IN TOTAL
     Route: 041
     Dates: start: 20200930, end: 20200930
  3. ROPIVACAINE HYDROCHLORIDE. [Suspect]
     Active Substance: ROPIVACAINE HYDROCHLORIDE
     Indication: INDUCTION OF ANAESTHESIA
     Dosage: 40 MG IN TOTAL
     Route: 051
     Dates: start: 20200930, end: 20200930
  4. SUFENTANIL [Suspect]
     Active Substance: SUFENTANIL
     Indication: SEDATION
     Dosage: 5 MCG IN TOTAL
     Route: 041
     Dates: start: 20200930, end: 20200930

REACTIONS (1)
  - Anaphylactic reaction [Recovered/Resolved]

NARRATIVE: CASE EVENT DATE: 20200930
